FAERS Safety Report 23662002 (Version 1)
Quarter: 2024Q1

REPORT INFORMATION
  Report Type: Spontaneous
  Country: US (occurrence: US)
  Receive Date: 20240322
  Receipt Date: 20240322
  Transmission Date: 20240409
  Serious: No
  Sender: FDA-Public Use
  Company Number: US-HIKMA PHARMACEUTICALS USA INC.-US-H14001-24-00886

PATIENT

DRUGS (1)
  1. AMIODARONE [Suspect]
     Active Substance: AMIODARONE
     Indication: Cardiac disorder
     Dosage: UNK
     Route: 065

REACTIONS (3)
  - Pulmonary function test abnormal [Unknown]
  - Dyspnoea [Recovered/Resolved]
  - Asthma [Unknown]
